FAERS Safety Report 12693577 (Version 1)
Quarter: 2016Q3

REPORT INFORMATION
  Report Type: Spontaneous
  Country: GB (occurrence: GB)
  Receive Date: 20160829
  Receipt Date: 20160829
  Transmission Date: 20161109
  Serious: Yes (Other)
  Sender: FDA-Public Use
  Company Number: GB-PFIZER INC-2015065854

PATIENT
  Age: 50 Year
  Sex: Female

DRUGS (2)
  1. METHOTREXATE SODIUM. [Suspect]
     Active Substance: METHOTREXATE SODIUM
     Dosage: UNK
  2. SIMPONI [Suspect]
     Active Substance: GOLIMUMAB
     Dosage: UNK
     Route: 058

REACTIONS (7)
  - Urinary tract infection [Unknown]
  - White blood cell count decreased [Unknown]
  - Condition aggravated [Unknown]
  - Nasopharyngitis [Unknown]
  - Cough [Unknown]
  - Sepsis [Unknown]
  - Viral infection [Unknown]
